FAERS Safety Report 17900131 (Version 1)
Quarter: 2020Q2

REPORT INFORMATION
  Report Type: Spontaneous
  Country: US (occurrence: US)
  Receive Date: 20200615
  Receipt Date: 20200615
  Transmission Date: 20200714
  Serious: No
  Sender: FDA-Public Use
  Company Number: None

PATIENT
  Age: 66 Year
  Sex: Male

DRUGS (11)
  1. FLOVENT [Concomitant]
     Active Substance: FLUTICASONE PROPIONATE
  2. TEMAZEPAM. [Concomitant]
     Active Substance: TEMAZEPAM
  3. TAMSULOSIN [Concomitant]
     Active Substance: TAMSULOSIN
  4. CHLORPHENIRAMINE. [Concomitant]
     Active Substance: CHLORPHENIRAMINE
  5. SIMVASTATIN. [Concomitant]
     Active Substance: SIMVASTATIN
  6. PROAIR HFA [Concomitant]
     Active Substance: ALBUTEROL SULFATE
  7. ERLEADA [Suspect]
     Active Substance: APALUTAMIDE
     Indication: PROSTATE CANCER
     Route: 048
     Dates: start: 20200403
  8. FLUOXETINE [Concomitant]
     Active Substance: FLUOXETINE HYDROCHLORIDE
  9. FAMOTIDINE. [Concomitant]
     Active Substance: FAMOTIDINE
  10. LOSARTAN. [Concomitant]
     Active Substance: LOSARTAN
  11. ALPRAZOLAM. [Concomitant]
     Active Substance: ALPRAZOLAM

REACTIONS (1)
  - Hyperhidrosis [None]
